FAERS Safety Report 23397080 (Version 2)
Quarter: 2024Q1

REPORT INFORMATION
  Report Type: Spontaneous
  Country: US (occurrence: US)
  Receive Date: 20240112
  Receipt Date: 20240213
  Transmission Date: 20240409
  Serious: Yes (Death, Hospitalization, Other)
  Sender: FDA-Public Use
  Company Number: US-PFIZER INC-202400006677

PATIENT
  Age: 73 Year
  Sex: Male

DRUGS (8)
  1. LORAZEPAM [Suspect]
     Active Substance: LORAZEPAM
     Dosage: INGESTION
     Route: 048
  2. MORPHINE [Suspect]
     Active Substance: MORPHINE
     Dosage: INGESTION
     Route: 048
  3. FUROSEMIDE [Suspect]
     Active Substance: FUROSEMIDE
     Dosage: INGESTION
     Route: 048
  4. POTASSIUM [Suspect]
     Active Substance: POTASSIUM
     Dosage: INGESTION
     Route: 048
  5. HYOSCYAMINE [Suspect]
     Active Substance: HYOSCYAMINE
     Dosage: INGESTION
     Route: 048
  6. HYDROCODONE [Suspect]
     Active Substance: HYDROCODONE
     Dosage: UNK
     Route: 048
  7. DIHYDROCODEINE HYDROCHLORIDE [Suspect]
     Active Substance: DIHYDROCODEINE HYDROCHLORIDE
     Dosage: UNK
     Route: 048
  8. HYDROMORPHONE [Suspect]
     Active Substance: HYDROMORPHONE
     Dosage: UNK
     Route: 048

REACTIONS (3)
  - Completed suicide [Fatal]
  - Cardiac arrest [Fatal]
  - Respiratory arrest [Fatal]

NARRATIVE: CASE EVENT DATE: 20220101
